FAERS Safety Report 8839527 (Version 1)
Quarter: 2012Q4

REPORT INFORMATION
  Report Type: Spontaneous
  Country: US (occurrence: None)
  Receive Date: 20121012
  Receipt Date: 20121012
  Transmission Date: 20130627
  Serious: Yes (Other)
  Sender: FDA-Public Use
  Company Number: None

PATIENT
  Age: 46 Year
  Sex: Male
  Weight: 84.8 kg

DRUGS (18)
  1. OFATUMUMAB [Suspect]
     Indication: DIFFUSE LARGE B-CELL LYMPHOMA REFRACTORY
     Dosage: 1000 mg weekly IV
     Route: 042
     Dates: start: 20120901
  2. OFATUMUMAB [Suspect]
     Indication: NON-HODGKIN^S LYMPHOMA REFRACTORY
     Dosage: 1000 mg weekly IV
     Route: 042
     Dates: start: 20120901
  3. ACYCLOVIR [Concomitant]
  4. FLUCONAZOLE [Concomitant]
  5. LANSOPRAZOLE [Concomitant]
  6. MULTIVITAMIN [Concomitant]
  7. URSODIOL [Concomitant]
  8. ZOLPIDEM(AMBIEN [Concomitant]
  9. DOCUSATE [Concomitant]
  10. PREDNISONE [Concomitant]
  11. POTASSIUM CHLORIDE [Concomitant]
  12. ZOFRAN [Concomitant]
  13. PROCHLORPERAZINE [Concomitant]
  14. IVIG [Concomitant]
  15. METHYLPREDNISOLONE [Concomitant]
  16. ATROPINE/HYOSCYAMINE/PB/SCOPOLAMINE [Concomitant]
  17. HYDROCORTISONE [Concomitant]
  18. MAGNESIUM [Concomitant]

REACTIONS (3)
  - Alanine aminotransferase increased [None]
  - Aspartate aminotransferase increased [None]
  - Blood alkaline phosphatase increased [None]
